FAERS Safety Report 19033241 (Version 1)
Quarter: 2021Q1

REPORT INFORMATION
  Report Type: Spontaneous
  Country: US (occurrence: US)
  Receive Date: 20210320
  Receipt Date: 20210320
  Transmission Date: 20210420
  Serious: Yes (Death, Life-Threatening, Hospitalization, Other)
  Sender: FDA-Public Use
  Company Number: US-CELLTRION INC.-2021US003490

PATIENT

DRUGS (4)
  1. ICE [CARBOPLATIN;ETOPOSIDE;IFOSFAMIDE] [Suspect]
     Active Substance: CARBOPLATIN\ETOPOSIDE\IFOSFAMIDE
     Indication: DIFFUSE LARGE B-CELL LYMPHOMA
     Dosage: UNK, CYCLIC
     Dates: start: 202010
  2. RITUXIMAB (UNKNOWN) [Suspect]
     Active Substance: RITUXIMAB
     Indication: DIFFUSE LARGE B-CELL LYMPHOMA
     Dosage: UNK, CYCLIC
     Dates: start: 202010
  3. RITUXIMAB (UNKNOWN) [Suspect]
     Active Substance: RITUXIMAB
     Dosage: UNK, CYCLIC
     Dates: start: 20201120
  4. ICE [CARBOPLATIN;ETOPOSIDE;IFOSFAMIDE] [Suspect]
     Active Substance: CARBOPLATIN\ETOPOSIDE\IFOSFAMIDE
     Dosage: UNK, CYCLIC
     Dates: start: 20201120

REACTIONS (2)
  - COVID-19 [Unknown]
  - Acute respiratory failure [Fatal]

NARRATIVE: CASE EVENT DATE: 20201104
